FAERS Safety Report 10163632 (Version 2)
Quarter: 2014Q3

REPORT INFORMATION
  Report Type: Spontaneous
  Country: US (occurrence: US)
  Receive Date: 20140509
  Receipt Date: 20140730
  Transmission Date: 20150326
  Serious: Yes (Hospitalization, Other)
  Sender: FDA-Public Use
  Company Number: US-GILEAD-2014-0101803

PATIENT
  Sex: Female

DRUGS (8)
  1. AMLODIPINE [Concomitant]
     Active Substance: AMLODIPINE BESYLATE
  2. VENTOLIN HFA [Concomitant]
     Active Substance: ALBUTEROL SULFATE
  3. BUMETANIDE. [Concomitant]
     Active Substance: BUMETANIDE
  4. LETAIRIS [Suspect]
     Active Substance: AMBRISENTAN
     Indication: PULMONARY ARTERIAL HYPERTENSION
     Dosage: 5 MG, QD
     Route: 065
     Dates: start: 20140328
  5. ALPRAZOLAM. [Concomitant]
     Active Substance: ALPRAZOLAM
  6. WARFARIN [Concomitant]
     Active Substance: WARFARIN
  7. SIMVASTATIN. [Concomitant]
     Active Substance: SIMVASTATIN
  8. CARVEDILOL. [Concomitant]
     Active Substance: CARVEDILOL

REACTIONS (5)
  - No therapeutic response [Unknown]
  - Cardiac failure [Unknown]
  - Blood count abnormal [Unknown]
  - Fluid overload [Unknown]
  - Dyspnoea [Unknown]
